FAERS Safety Report 8046720-1 (Version None)
Quarter: 2012Q1

REPORT INFORMATION
  Report Type: 
  Country: None (occurrence: None)
  Receive Date: 20120116
  Receipt Date: 20120105
  Transmission Date: 20120608
  Serious: Yes (Hospitalization, Other)
  Sender: FDA-Public Use
  Company Number: US-BIOGENIDEC-2011BI047989

PATIENT
  Age: 43 Year
  Sex: Female

DRUGS (10)
  1. ULTRAM [Concomitant]
  2. REMERON [Concomitant]
     Indication: DEPRESSION
     Route: 048
  3. COLACE [Concomitant]
     Indication: CONSTIPATION
     Route: 048
  4. XANAX [Concomitant]
  5. CITALOPRAM [Concomitant]
     Indication: DEPRESSION
     Route: 048
  6. REMERON [Concomitant]
     Indication: INSOMNIA
     Route: 048
  7. FLEXERIL [Concomitant]
     Indication: MUSCLE SPASMS
     Route: 048
  8. LACTULOSE [Concomitant]
     Indication: CONSTIPATION
     Route: 048
  9. VISTARIL [Concomitant]
     Indication: ANXIETY
     Route: 048
  10. TYSABRI [Suspect]
     Indication: MULTIPLE SCLEROSIS
     Route: 042
     Dates: start: 20101012

REACTIONS (2)
  - SUICIDE ATTEMPT [None]
  - MULTIPLE DRUG OVERDOSE INTENTIONAL [None]
